FAERS Safety Report 6401413-9 (Version None)
Quarter: 2009Q4

REPORT INFORMATION
  Report Type: 
  Country: None (occurrence: None)
  Receive Date: 20091015
  Receipt Date: 20070312
  Transmission Date: 20100525
  Serious: Yes (Disabling)
  Sender: FDA-Public Use
  Company Number: US-ASTRAZENECA-2006UW11314

PATIENT
  Sex: Male
  Weight: 88.9 kg

DRUGS (29)
  1. SEROQUEL [Suspect]
     Dosage: 25-300MG
     Route: 048
     Dates: start: 20011211
  2. SEROQUEL [Suspect]
     Route: 048
  3. ASPIRIN [Concomitant]
  4. REMERON [Concomitant]
  5. GLUCOPHAGE [Concomitant]
  6. VISTARIL [Concomitant]
  7. PAXIL [Concomitant]
  8. NEURONTIN [Concomitant]
  9. ULTRACET [Concomitant]
  10. VIOXX [Concomitant]
  11. COZAAR [Concomitant]
  12. DIPHENHYDRAMINE HCL [Concomitant]
  13. WELLBUTRIN [Concomitant]
  14. GINSENG [Concomitant]
  15. ROBINUL [Concomitant]
  16. EXCEDRIN (MIGRAINE) [Concomitant]
  17. PREVACID [Concomitant]
  18. PROTONIX [Concomitant]
  19. PRILOSEC [Concomitant]
  20. LORAZEPAM [Concomitant]
  21. RISPERDAL [Concomitant]
  22. LEXAPRO [Concomitant]
  23. CELEXA [Concomitant]
  24. XANAX [Concomitant]
  25. NOVOLIN [Concomitant]
  26. NEXIUM [Concomitant]
  27. VYTORIN [Concomitant]
  28. TRAZODONE [Concomitant]
  29. EFFEXOR [Concomitant]

REACTIONS (2)
  - ILL-DEFINED DISORDER [None]
  - MULTIPLE INJURIES [None]
